FAERS Safety Report 5485432-5 (Version None)
Quarter: 2007Q4

REPORT INFORMATION
  Report Type: 
  Country: None (occurrence: None)
  Receive Date: 20071015
  Receipt Date: 20071003
  Transmission Date: 20080405
  Serious: Yes (Life-Threatening, Hospitalization)
  Sender: FDA-Public Use
  Company Number: US-GENENTECH-231526

PATIENT
  Age: 64 Year
  Sex: Male

DRUGS (10)
  1. BEVACIZUMAB [Suspect]
     Indication: ADENOCARCINOMA PANCREAS
     Dosage: 10 MG/KG, UNK
     Route: 042
     Dates: start: 20060902, end: 20060930
  2. GEMCITABINE HCL [Suspect]
     Indication: ADENOCARCINOMA PANCREAS
     Dosage: 400 MG/M2, UNK
     Route: 042
     Dates: start: 20060902, end: 20061007
  3. GEMCITABINE HCL [Suspect]
     Dosage: 621 MG, UNK
     Route: 042
     Dates: start: 20060916, end: 20061007
  4. CREON [Concomitant]
     Indication: DRUG USE FOR UNKNOWN INDICATION
     Dosage: UNK, TID
  5. HYDROCODONE BITARTRATE AND ACETAMINOPHEN [Concomitant]
     Indication: PAIN
     Dosage: 7.5/500 MG, PRN
  6. ALLOPURINOL [Concomitant]
     Indication: DRUG USE FOR UNKNOWN INDICATION
     Dosage: 100 MG, UNK
  7. PRAVACHOL [Concomitant]
     Indication: DRUG USE FOR UNKNOWN INDICATION
     Dosage: 20 MG, UNK
  8. PROTONIX [Concomitant]
     Indication: DRUG USE FOR UNKNOWN INDICATION
     Dosage: 40 MG, BID
  9. QUINAPRIL HCL [Concomitant]
     Indication: DRUG USE FOR UNKNOWN INDICATION
     Dosage: 10 MG, UNK
  10. ZOFRAN [Concomitant]
     Indication: NAUSEA
     Dosage: 8 MG, PRN

REACTIONS (11)
  - CHOLANGITIS [None]
  - CHOLECYSTITIS ACUTE [None]
  - CHOLELITHIASIS [None]
  - HYPOTENSION [None]
  - ILEUS [None]
  - MALNUTRITION [None]
  - PHARYNGITIS [None]
  - RENAL FAILURE ACUTE [None]
  - SEPSIS [None]
  - SINUS TACHYCARDIA [None]
  - STENT OCCLUSION [None]
